FAERS Safety Report 8520902-4 (Version None)
Quarter: 2012Q3

REPORT INFORMATION
  Report Type: 
  Country: None (occurrence: None)
  Receive Date: 20120712
  Receipt Date: 20120712
  Transmission Date: 20120928
  Serious: Yes (Hospitalization)
  Sender: FDA-Public Use
  Company Number: None

PATIENT
  Age: 49 Year
  Sex: Female

DRUGS (1)
  1. LITHIUM CARBONATE [Suspect]
     Indication: BIPOLAR DISORDER
     Dosage: 300MG TWICE DAILY PO
     Route: 048
     Dates: start: 20120625, end: 20120709

REACTIONS (11)
  - RASH [None]
  - ABDOMINAL DISTENSION [None]
  - SOMNOLENCE [None]
  - OEDEMA PERIPHERAL [None]
  - CONFUSIONAL STATE [None]
  - DIZZINESS [None]
  - NAUSEA [None]
  - CLUMSINESS [None]
  - VISION BLURRED [None]
  - DYSARTHRIA [None]
  - FEELING COLD [None]
